FAERS Safety Report 19737206 (Version 2)
Quarter: 2021Q3

REPORT INFORMATION
  Report Type: Report from Study
  Country: US (occurrence: US)
  Receive Date: 20210824
  Receipt Date: 20210825
  Transmission Date: 20211014
  Serious: No
  Sender: FDA-Public Use
  Company Number: US-PFIZER INC-202101031275

PATIENT
  Sex: Female

DRUGS (4)
  1. TRASTUZUMAB. [Suspect]
     Active Substance: TRASTUZUMAB
     Indication: UTERINE CANCER
     Dosage: INITIAL DOSE OF 8 MG/KG IV OVER 90 M
     Route: 042
  2. TRASTUZUMAB. [Suspect]
     Active Substance: TRASTUZUMAB
     Dosage: 6 MG/KG, EVERY 3 WEEKS (6 MG/KG IV OVER 30?60 M EVERY 3 WKS UNTIL DISEASE PROGRESSION)
     Route: 042
  3. PERTUZUMAB. [Suspect]
     Active Substance: PERTUZUMAB
     Dosage: 420 MG, EVERY 3 WEEKS (420 MG IV OVER 30?60 M EVERY 3 WEEKS)
     Route: 042
  4. PERTUZUMAB. [Suspect]
     Active Substance: PERTUZUMAB
     Indication: UTERINE CANCER
     Dosage: INITIAL DOSE OF 840 MG INTRAVENOUSLY (IV) OVER 60 MINUTES
     Route: 042

REACTIONS (1)
  - Muscular weakness [Unknown]
